FAERS Safety Report 5389441-6 (Version None)
Quarter: 2007Q3

REPORT INFORMATION
  Report Type: 
  Country: None (occurrence: None)
  Receive Date: 20070717
  Receipt Date: 20070706
  Transmission Date: 20080115
  Serious: Yes (Hospitalization)
  Sender: FDA-Public Use
  Company Number: US-ROCHE-505760

PATIENT
  Sex: Female

DRUGS (2)
  1. INTERFERON ALFA [Suspect]
     Indication: DRUG USE FOR UNKNOWN INDICATION
     Dosage: THE PATIENT HAD 8 INJECTIONS OF INTERFERON
     Route: 065
  2. UNSPECIFIED DRUG [Suspect]
     Indication: DRUG USE FOR UNKNOWN INDICATION
     Dosage: THE PATIENT WAS ON UNSPECIFIED TABLET
     Route: 065

REACTIONS (4)
  - ANXIETY [None]
  - DEHYDRATION [None]
  - FATIGUE [None]
  - TACHYCARDIA [None]
